FAERS Safety Report 20805913 (Version 1)
Quarter: 2022Q2

REPORT INFORMATION
  Report Type: Spontaneous
  Country: US (occurrence: US)
  Receive Date: 20220510
  Receipt Date: 20220510
  Transmission Date: 20220721
  Serious: No
  Sender: FDA-Public Use
  Company Number: US-ALLERGAN-2207839US

PATIENT
  Age: 6 Decade
  Sex: Female

DRUGS (1)
  1. VUITY [Suspect]
     Active Substance: PILOCARPINE HYDROCHLORIDE
     Indication: Presbyopia
     Dosage: UNK UNK, SINGLE

REACTIONS (2)
  - Muscle spasms [Recovered/Resolved]
  - Vitreous floaters [Recovered/Resolved]
